FAERS Safety Report 14705170 (Version 1)
Quarter: 2018Q2

REPORT INFORMATION
  Report Type: Report from Study
  Country: US (occurrence: US)
  Receive Date: 20180402
  Receipt Date: 20180402
  Transmission Date: 20180711
  Serious: Yes (Hospitalization)
  Sender: FDA-Public Use
  Company Number: US-JNJFOC-20180343325

PATIENT
  Sex: Female

DRUGS (1)
  1. IMBRUVICA [Suspect]
     Active Substance: IBRUTINIB
     Indication: MANTLE CELL LYMPHOMA
     Route: 048

REACTIONS (7)
  - Arthralgia [Unknown]
  - Contusion [Unknown]
  - Vertigo [Unknown]
  - Diarrhoea [Unknown]
  - Head injury [Unknown]
  - Fall [Unknown]
  - Joint dislocation [Unknown]
